FAERS Safety Report 25511281 (Version 1)
Quarter: 2025Q3

REPORT INFORMATION
  Report Type: Spontaneous
  Country: US (occurrence: US)
  Receive Date: 20250703
  Receipt Date: 20250703
  Transmission Date: 20251020
  Serious: No
  Sender: RADIUS PHARM
  Company Number: US-RADIUS HEALTH INC.-2024US004264

PATIENT
  Age: 81 Year
  Sex: Female

DRUGS (3)
  1. TYMLOS [Suspect]
     Active Substance: ABALOPARATIDE
     Indication: Osteoporosis
     Route: 058
     Dates: start: 2024
  2. SYNTHROID [Concomitant]
     Active Substance: LEVOTHYROXINE SODIUM
     Indication: Hypothyroidism
  3. MULTAQ [Concomitant]
     Active Substance: DRONEDARONE
     Indication: Atrial fibrillation

REACTIONS (2)
  - Product quality issue [Recovered/Resolved]
  - Tremor [Recovering/Resolving]

NARRATIVE: CASE EVENT DATE: 20240601
